FAERS Safety Report 9290743 (Version 2)
Quarter: 2013Q2

REPORT INFORMATION
  Report Type: Spontaneous
  Country: AU (occurrence: AU)
  Receive Date: 20130515
  Receipt Date: 20130523
  Transmission Date: 20140414
  Serious: Yes (Death)
  Sender: FDA-Public Use
  Company Number: AU-B.I. PHARMACEUTICALS,INC./RIDGEFIELD-2013-AU-00571AU

PATIENT
  Sex: Female

DRUGS (13)
  1. PRADAXA [Suspect]
     Indication: CEREBROVASCULAR ACCIDENT PROPHYLAXIS
     Dosage: 300 MG
     Dates: start: 20110616
  2. PRADAXA [Suspect]
     Indication: ATRIAL FIBRILLATION
  3. CARDIZEM [Concomitant]
     Dosage: 240 MG
  4. GALVUMET [Concomitant]
     Dosage: 50MG;1000MG
  5. GENTEAL [Concomitant]
     Dosage: 0.3%
  6. LANTUS [Concomitant]
     Dosage: 90 U
  7. LIPIDIL [Concomitant]
     Dosage: 145 MG
  8. LIPITOR [Concomitant]
     Dosage: 40 MG
  9. NITROLINGUAL [Concomitant]
     Dosage: PUMPSPRAY
  10. PANADOL OSTEO [Concomitant]
  11. RAMIPRIL [Concomitant]
     Dosage: 10 MG
  12. ZOLOFT [Concomitant]
     Dosage: 50 MG
  13. ZOTON FASTABS [Concomitant]
     Dosage: 30 MG

REACTIONS (1)
  - Sudden death [Fatal]
